FAERS Safety Report 10701454 (Version 1)
Quarter: 2015Q1

REPORT INFORMATION
  Report Type: Spontaneous
  Country: DE (occurrence: FR)
  Receive Date: 20150109
  Receipt Date: 20150109
  Transmission Date: 20150721
  Serious: Yes (Hospitalization)
  Sender: FDA-Public Use
  Company Number: FR-FRI-1000073530

PATIENT
  Age: 35 Year
  Sex: Female

DRUGS (7)
  1. KEPPRA [Suspect]
     Active Substance: LEVETIRACETAM
     Dosage: OVERDOSE: 10 TABLETS NOS (10 DOSAGE FORMS)
     Route: 048
     Dates: start: 20140926, end: 20140926
  2. IRBESARTAN. [Suspect]
     Active Substance: IRBESARTAN
     Dosage: OVERDOSE: 20 TABLETS NOS (20 DOSAGE FORMS)
     Route: 048
     Dates: start: 20140926, end: 20140926
  3. BISOPROLOL [Suspect]
     Active Substance: BISOPROLOL
     Dosage: OVERDOSE: 20 TABLETS NOS (20 DOSAGE FORMS)
     Route: 048
     Dates: start: 20140926, end: 20140926
  4. MEMANTINE [Suspect]
     Active Substance: MEMANTINE
     Dosage: OVERDOSE: 14 TABLETS NOS (14 DOSAGE FORMS)
     Route: 048
     Dates: start: 20140926, end: 20140926
  5. GLICLAZIDE [Suspect]
     Active Substance: GLICLAZIDE
     Dosage: OVERDOSE: 15 TABLETS NOS (15 DOSAGE FORMS)
     Route: 048
     Dates: start: 20140926, end: 20140926
  6. RILMENIDINE [Suspect]
     Active Substance: RILMENIDINE
     Dosage: OVERDOSE: 15 TABLETS NOS (15 DOSAGE FORMS)
     Route: 048
     Dates: start: 20140926, end: 20140926
  7. HEMIGOXINE NATIVELLE [Suspect]
     Active Substance: DIGOXIN
     Dosage: OVERDOSE: 3.75 MG
     Route: 048
     Dates: start: 20140926, end: 20140926

REACTIONS (3)
  - Sinus bradycardia [Recovered/Resolved]
  - Overdose [Recovered/Resolved]
  - Hypotension [Recovered/Resolved]

NARRATIVE: CASE EVENT DATE: 20140926
